FAERS Safety Report 7719353-1 (Version None)
Quarter: 2011Q3

REPORT INFORMATION
  Report Type: 
  Country: None (occurrence: None)
  Receive Date: 20110830
  Receipt Date: 20110822
  Transmission Date: 20111222
  Serious: Yes (Other)
  Sender: FDA-Public Use
  Company Number: CA-JNJFOC-20110709319

PATIENT
  Sex: Female
  Weight: 75 kg

DRUGS (5)
  1. REMICADE [Suspect]
     Route: 042
     Dates: start: 20110614
  2. SINGULAIR [Concomitant]
     Indication: CROHN'S DISEASE
     Dosage: AS NEEDED
     Route: 065
     Dates: start: 19990101
  3. REMICADE [Suspect]
     Route: 042
     Dates: start: 20110322
  4. METHOTREXATE [Concomitant]
     Indication: CROHN'S DISEASE
     Route: 048
     Dates: start: 20110101
  5. REMICADE [Suspect]
     Indication: CROHN'S DISEASE
     Route: 042
     Dates: start: 20090508

REACTIONS (2)
  - BASAL CELL CARCINOMA [None]
  - RASH [None]
